FAERS Safety Report 16347311 (Version 1)
Quarter: 2019Q3

REPORT INFORMATION
  Report Type: Spontaneous
  Country: US (occurrence: US)
  Receive Date: 20190522
  Receipt Date: 20190522
  Transmission Date: 20191004
  Serious: Yes (Other)
  Sender: FDA-Public Use
  Company Number: None

PATIENT
  Age: 64 Year
  Sex: Male
  Weight: 70.2 kg

DRUGS (8)
  1. METFORMIN [Concomitant]
     Active Substance: METFORMIN HYDROCHLORIDE
  2. VITAMON B12 [Concomitant]
  3. NIACIN. [Concomitant]
     Active Substance: NIACIN
  4. VERAPAMIL [Concomitant]
     Active Substance: VERAPAMIL HYDROCHLORIDE
  5. COENZYME Q 10 [Concomitant]
  6. ROSUVASTATIN. [Concomitant]
     Active Substance: ROSUVASTATIN
  7. XARELTO [Concomitant]
     Active Substance: RIVAROXABAN
  8. LEVOFLOXACIN 500 MG [Suspect]
     Active Substance: LEVOFLOXACIN
     Indication: GROIN PAIN
     Dosage: ?          QUANTITY:1 TABLET(S);?
     Route: 048
     Dates: start: 20190516, end: 20190519

REACTIONS (1)
  - Dizziness [None]

NARRATIVE: CASE EVENT DATE: 20190519
